FAERS Safety Report 6907847-8 (Version None)
Quarter: 2010Q3

REPORT INFORMATION
  Report Type: 
  Country: None (occurrence: None)
  Receive Date: 20100805
  Receipt Date: 20100726
  Transmission Date: 20110219
  Serious: Yes (Hospitalization, Other)
  Sender: FDA-Public Use
  Company Number: US-SANOFI-AVENTIS-2010SA044496

PATIENT
  Age: 66 Year
  Sex: Female

DRUGS (3)
  1. ELOXATIN [Suspect]
     Indication: OESOPHAGEAL ADENOCARCINOMA
     Route: 041
     Dates: start: 20100630, end: 20100630
  2. TAXOTERE [Suspect]
     Indication: OESOPHAGEAL ADENOCARCINOMA
     Route: 041
     Dates: start: 20100630, end: 20100630
  3. ERBITUX [Suspect]
     Indication: OESOPHAGEAL ADENOCARCINOMA
     Route: 065
     Dates: start: 20100630, end: 20100630

REACTIONS (2)
  - FEBRILE NEUTROPENIA [None]
  - MYOCARDIAL INFARCTION [None]
